FAERS Safety Report 9097122 (Version 1)
Quarter: 2013Q1

REPORT INFORMATION
  Report Type: Spontaneous
  Country: US (occurrence: US)
  Receive Date: 20130212
  Receipt Date: 20130212
  Transmission Date: 20140127
  Serious: No
  Sender: FDA-Public Use
  Company Number: US-009507513-1302USA003923

PATIENT
  Age: 62 Year
  Sex: Female

DRUGS (5)
  1. SAPHRIS [Suspect]
     Indication: BIPOLAR I DISORDER
     Dosage: UNK UNK, RAPID DISSOLVE 5, HS SMG/QHS,
     Route: 060
     Dates: start: 20130204, end: 20130206
  2. ABILIFY [Concomitant]
  3. LEXAPRO [Concomitant]
  4. LAMICTAL [Concomitant]
  5. LEVOTHYROXINE SODIUM [Concomitant]

REACTIONS (2)
  - Dyspnoea [Recovered/Resolved]
  - Swollen tongue [Recovered/Resolved]
